FAERS Safety Report 8896655 (Version 1)
Quarter: 2012Q4

REPORT INFORMATION
  Report Type: Spontaneous
  Country: US (occurrence: None)
  Receive Date: 20121107
  Receipt Date: 20121107
  Transmission Date: 20130627
  Serious: No
  Sender: FDA-Public Use
  Company Number: None

PATIENT
  Sex: Female
  Weight: 58.97 kg

DRUGS (3)
  1. NIASPAN ER [Suspect]
     Indication: HDL DECREASED
     Dosage: several years
  2. NIASPAN ER [Suspect]
     Indication: TRIGLYCERIDE INCREASED
     Dosage: several years
  3. NIASPAN ER [Suspect]
     Indication: LDL INCREASED
     Dosage: several years

REACTIONS (7)
  - Erythema [None]
  - Erythema [None]
  - Paraesthesia [None]
  - Ear disorder [None]
  - Pruritus [None]
  - Thermal burn [None]
  - Drug hypersensitivity [None]
